FAERS Safety Report 6667018-X (Version None)
Quarter: 2010Q2

REPORT INFORMATION
  Report Type: 
  Country: None (occurrence: None)
  Receive Date: 20100405
  Receipt Date: 20100326
  Transmission Date: 20101027
  Serious: Yes (Other)
  Sender: FDA-Public Use
  Company Number: ES-JNJFOC-20100308419

PATIENT
  Sex: Male
  Weight: 150 kg

DRUGS (3)
  1. STELARA [Suspect]
     Indication: PSORIASIS
     Route: 058
  2. INFLIXIMAB [Suspect]
     Indication: PSORIASIS
  3. ISONIAZID [Concomitant]

REACTIONS (1)
  - TUBERCULOSIS [None]
